FAERS Safety Report 20166663 (Version 1)
Quarter: 2021Q4

REPORT INFORMATION
  Report Type: Other
  Country: FR (occurrence: FR)
  Receive Date: 20211209
  Receipt Date: 20211209
  Transmission Date: 20220303
  Serious: Yes (Other)
  Sender: FDA-Public Use
  Company Number: FR-Alcami_Corporation-USA-POI0581202100011

PATIENT
  Age: 36 Year
  Sex: Female

DRUGS (2)
  1. AZASAN [Suspect]
     Active Substance: AZATHIOPRINE
     Indication: Colitis ulcerative
     Route: 048
     Dates: end: 2018
  2. INFLIXIMAB [Suspect]
     Active Substance: INFLIXIMAB
     Indication: Colitis ulcerative
     Dosage: UNKNOWN
     Dates: end: 2018

REACTIONS (1)
  - Cholestasis of pregnancy [Recovered/Resolved]

NARRATIVE: CASE EVENT DATE: 20180101
